FAERS Safety Report 24871126 (Version 1)
Quarter: 2025Q1

REPORT INFORMATION
  Report Type: Spontaneous
  Country: FR (occurrence: FR)
  Receive Date: 20250122
  Receipt Date: 20250122
  Transmission Date: 20250408
  Serious: Yes (Death)
  Sender: CHEPLAPHARM
  Company Number: None

PATIENT
  Age: 37 Year
  Sex: Male
  Weight: 69 kg

DRUGS (2)
  1. CLONAZEPAM [Suspect]
     Active Substance: CLONAZEPAM
     Dates: end: 202302
  2. METHADONE [Suspect]
     Active Substance: METHADONE HYDROCHLORIDE
     Dates: end: 202302

REACTIONS (2)
  - Drug use disorder [Fatal]
  - Asphyxia [Fatal]
